FAERS Safety Report 5565678-8 (Version None)
Quarter: 2007Q4

REPORT INFORMATION
  Report Type: 
  Country: None (occurrence: None)
  Receive Date: 20071218
  Receipt Date: 20071213
  Transmission Date: 20080405
  Serious: Yes (Hospitalization, Other)
  Sender: FDA-Public Use
  Company Number: US-RANBAXY-2007US-12106

PATIENT

DRUGS (3)
  1. LORAZEPAM [Suspect]
     Indication: SEDATION
     Route: 042
  2. ESMOLOL HCL [Suspect]
     Indication: INJURY
     Route: 042
  3. PROPYLENE GLYCOL [Suspect]
     Route: 017

REACTIONS (2)
  - METABOLIC ACIDOSIS [None]
  - RENAL IMPAIRMENT [None]
